FAERS Safety Report 8914423 (Version 1)
Quarter: 2012Q4

REPORT INFORMATION
  Report Type: 
  Country: BR (occurrence: BR)
  Receive Date: 20121119
  Receipt Date: 20121119
  Transmission Date: 20130627
  Serious: Yes (Hospitalization)
  Sender: FDA-Public Use
  Company Number: BR-PFIZER INC-2012287948

PATIENT
  Age: 66 Year
  Sex: Female
  Weight: 68 kg

DRUGS (1)
  1. FRONTAL [Suspect]
     Indication: DIFFICULTY SLEEPING
     Dosage: 1 mg (one tablet), 1x/day
     Route: 048
     Dates: start: 2007

REACTIONS (2)
  - Cardiomyopathy [Recovered/Resolved]
  - Off label use [Unknown]
